FAERS Safety Report 13768079 (Version 8)
Quarter: 2019Q2

REPORT INFORMATION
  Report Type: Spontaneous
  Country: US (occurrence: US)
  Receive Date: 20170719
  Receipt Date: 20190416
  Transmission Date: 20190711
  Serious: Yes (Other)
  Sender: FDA-Public Use
  Company Number: US-PFIZER INC-2016600829

PATIENT
  Age: 72 Year
  Sex: Female
  Weight: 74.38 kg

DRUGS (6)
  1. IBRANCE [Suspect]
     Active Substance: PALBOCICLIB
     Dosage: 100 MG, CYCLIC [21 DAYS AND THEN OFF 7 DAYS]
     Route: 048
     Dates: start: 201701, end: 201804
  2. IBRANCE [Suspect]
     Active Substance: PALBOCICLIB
     Dosage: 125 MG, DAILY
     Route: 048
  3. XGEVA [Suspect]
     Active Substance: DENOSUMAB
     Indication: BONE DISORDER
     Dosage: UNK, MONTHLY (INJECTION ONCE A MONTH)
     Dates: start: 201802, end: 201804
  4. FEMARA [Concomitant]
     Active Substance: LETROZOLE
     Dosage: UNK, DAILY (25, EVERY DAY)
  5. IBRANCE [Suspect]
     Active Substance: PALBOCICLIB
     Indication: BREAST CANCER METASTATIC
     Dosage: 100 MG, CYCLIC (ONCE DAILY WITH FOOD, 21 DAYS ON, 7 DAYS OFF)
     Route: 048
     Dates: start: 201702
  6. LETROZOLE. [Suspect]
     Active Substance: LETROZOLE
     Dosage: UNK

REACTIONS (15)
  - Hypoacusis [Unknown]
  - Impaired gastric emptying [Unknown]
  - Abdominal discomfort [Recovered/Resolved]
  - Gastric disorder [Recovered/Resolved]
  - Product dose omission [Unknown]
  - Nausea [Unknown]
  - Pain in extremity [Recovered/Resolved]
  - Vomiting [Unknown]
  - Bone pain [Recovered/Resolved]
  - Cataract [Unknown]
  - Constipation [Unknown]
  - Sleep disorder [Unknown]
  - Back pain [Unknown]
  - Myalgia [Recovered/Resolved]
  - Musculoskeletal pain [Recovered/Resolved]

NARRATIVE: CASE EVENT DATE: 201704
